FAERS Safety Report 9787451 (Version 1)
Quarter: 2013Q4

REPORT INFORMATION
  Report Type: Spontaneous
  Country: US (occurrence: US)
  Receive Date: 20131230
  Receipt Date: 20131230
  Transmission Date: 20140711
  Serious: No
  Sender: FDA-Public Use
  Company Number: US-BIOGENIDEC-2013BI123713

PATIENT
  Sex: Female

DRUGS (8)
  1. AVONEX [Suspect]
     Indication: MULTIPLE SCLEROSIS
     Route: 030
     Dates: start: 20130212
  2. ASPIRIN [Concomitant]
  3. BUPROPION HCL ER (XL) [Concomitant]
  4. GABAPENTIN [Concomitant]
  5. LOVASTATIN [Concomitant]
  6. METOPROLOL SUCCINATE ER [Concomitant]
  7. NAMENDA [Concomitant]
  8. PREMARIN [Concomitant]

REACTIONS (1)
  - General physical health deterioration [Unknown]
